FAERS Safety Report 6826463-X (Version None)
Quarter: 2010Q3

REPORT INFORMATION
  Report Type: 
  Country: None (occurrence: None)
  Receive Date: 20100709
  Receipt Date: 20100701
  Transmission Date: 20110219
  Serious: Yes (Other)
  Sender: FDA-Public Use
  Company Number: BR-JNJFOC-20100501861

PATIENT
  Age: 57 Year
  Sex: Female
  Weight: 52 kg

DRUGS (3)
  1. ULTRACET [Suspect]
     Indication: BONE PAIN
     Dosage: ACETAMINOPHEN 325 MG AND TRAMADOL HYDROCHLORIDE 37.5 MG; 1 TABLET EVERY 8 HOURS
     Route: 048
  2. OMEPRAZOLE [Concomitant]
     Indication: ABDOMINAL PAIN UPPER
     Dosage: 1 TABLET IN THE MORNING
  3. UNKNOWN MEDICATION [Concomitant]
     Indication: BACK PAIN
     Dosage: 1 TABLET EVERY 6 HOURS

REACTIONS (8)
  - CHEST DISCOMFORT [None]
  - DIZZINESS [None]
  - HYPOAESTHESIA [None]
  - HYPOKINESIA [None]
  - SENSATION OF HEAVINESS [None]
  - TACHYCARDIA [None]
  - TREATMENT NONCOMPLIANCE [None]
  - TREMOR [None]
